FAERS Safety Report 12605176 (Version 1)
Quarter: 2016Q3

REPORT INFORMATION
  Report Type: Spontaneous
  Country: LV (occurrence: LV)
  Receive Date: 20160729
  Receipt Date: 20160729
  Transmission Date: 20161109
  Serious: Yes (Life-Threatening, Hospitalization, Other)
  Sender: FDA-Public Use
  Company Number: LV-BAXTER-2016BAX038936

PATIENT
  Age: 12 Year
  Sex: Female
  Weight: 33.5 kg

DRUGS (2)
  1. ENDOXAN 50 MG APVALKOTAS TABLETES [Suspect]
     Active Substance: CYCLOPHOSPHAMIDE
     Indication: PRODUCT USED FOR UNKNOWN INDICATION
     Dosage: ONE TABLET TWO TIMES A DAY
     Route: 048
     Dates: start: 20160621, end: 20160706
  2. ENDOXAN 50 MG APVALKOTAS TABLETES [Suspect]
     Active Substance: CYCLOPHOSPHAMIDE
     Dosage: DOSE RE-INTORDUCED
     Route: 048

REACTIONS (5)
  - Graft versus host disease in gastrointestinal tract [Recovering/Resolving]
  - Bone marrow failure [Recovering/Resolving]
  - Wrong drug administered [Recovered/Resolved]
  - Graft versus host disease in liver [Recovering/Resolving]
  - Drug dispensing error [Recovered/Resolved]

NARRATIVE: CASE EVENT DATE: 20160621
